FAERS Safety Report 4353081-8 (Version None)
Quarter: 2004Q2

REPORT INFORMATION
  Report Type: 
  Country: None (occurrence: None)
  Receive Date: 20040430
  Receipt Date: 20040212
  Transmission Date: 20050107
  Serious: No
  Sender: FDA-Public Use
  Company Number: 204714

PATIENT
  Age: 54 Year
  Sex: Female

DRUGS (12)
  1. XOLAIR [Suspect]
     Indication: BRONCHOPULMONARY ASPERGILLOSIS ALLERGIC
     Dosage: 300 MG, Q4W, SUBCUTANEOUS
     Route: 058
     Dates: start: 20031210, end: 20040111
  2. COUMADIN [Concomitant]
  3. PRILOSEC [Concomitant]
  4. ZYRTEC [Concomitant]
  5. SEREVENT [Concomitant]
  6. ALBUTEROL NEBULIZER (ALBUTEROL, ALBUTEROL SULFATE) [Concomitant]
  7. ALBUTEROL SOLUTION (ALBUTEROL SULFATE, ALBUTEROL) [Concomitant]
  8. ATROVENT SOLUTION (IPRATROPIUM BROMIDE) [Concomitant]
  9. SINGULAIR [Concomitant]
  10. COMBIVENT INHALER (IPRATROPIUM BROMIDE, ALBUTEROL, ALBUTEROL SULFATE) [Concomitant]
  11. FLONASE NASAL SPRAY (FLUTICASONE PROPIONATE) [Concomitant]
  12. PULMICORT INHALER (BUDESONIDE) [Concomitant]

REACTIONS (2)
  - ARTHRALGIA [None]
  - PAIN IN EXTREMITY [None]
